FAERS Safety Report 6450370-8 (Version None)
Quarter: 2009Q4

REPORT INFORMATION
  Report Type: 
  Country: None (occurrence: None)
  Receive Date: 20091123
  Receipt Date: 20091112
  Transmission Date: 20100525
  Serious: Yes (Hospitalization)
  Sender: FDA-Public Use
  Company Number: JP-ROCHE-669971

PATIENT
  Sex: Female
  Weight: 60 kg

DRUGS (5)
  1. TAMIFLU [Suspect]
     Indication: INFLUENZA
     Route: 048
     Dates: start: 20090924, end: 20090924
  2. TAMIFLU [Suspect]
     Route: 048
     Dates: start: 20090925, end: 20090927
  3. TAMIFLU [Suspect]
     Route: 048
     Dates: start: 20090928, end: 20090928
  4. CALONAL [Concomitant]
     Dosage: FORM: ORAL FORMULATION. 2-3 TIMES/DAY.
     Route: 048
     Dates: start: 20090924, end: 20090928
  5. MAO-TO [Concomitant]
     Route: 048
     Dates: start: 20090924, end: 20090928

REACTIONS (2)
  - SHOCK [None]
  - TOXIC SKIN ERUPTION [None]
